FAERS Safety Report 6902666-0 (Version None)
Quarter: 2010Q3

REPORT INFORMATION
  Report Type: 
  Country: None (occurrence: None)
  Receive Date: 20100803
  Receipt Date: 20080801
  Transmission Date: 20110219
  Serious: No
  Sender: FDA-Public Use
  Company Number: US-PFIZER INC-2008064586

PATIENT
  Sex: Female
  Weight: 76.363 kg

DRUGS (8)
  1. LYRICA [Suspect]
     Indication: FIBROMYALGIA
     Dates: start: 20070901
  2. GABAPENTIN [Suspect]
     Dates: start: 20070101
  3. LEVOTHYROXINE [Concomitant]
  4. METHOTREXATE [Concomitant]
  5. FOLIC ACID [Concomitant]
  6. TOPAMAX [Concomitant]
  7. WELLBUTRIN [Concomitant]
  8. EVISTA [Concomitant]

REACTIONS (5)
  - ACTIVITIES OF DAILY LIVING IMPAIRED [None]
  - APHASIA [None]
  - FEELING ABNORMAL [None]
  - MALAISE [None]
  - WEIGHT INCREASED [None]
